FAERS Safety Report 7593743-2 (Version None)
Quarter: 2011Q3

REPORT INFORMATION
  Report Type: 
  Country: None (occurrence: None)
  Receive Date: 20110706
  Receipt Date: 20110623
  Transmission Date: 20111222
  Serious: Yes (Other)
  Sender: FDA-Public Use
  Company Number: NL-UCBSA-035961

PATIENT
  Age: 62 Year
  Sex: Female

DRUGS (9)
  1. CIMZIA [Suspect]
     Indication: RHEUMATOID ARTHRITIS
     Dosage: 200 MG TWO INJECTIONS
     Route: 058
     Dates: start: 20110304, end: 20110101
  2. AZATHIOPRINE [Concomitant]
  3. METOPROLOLTART [Concomitant]
  4. METFORMINE HCL [Concomitant]
  5. CIMZIA [Suspect]
     Dosage: 200 MG 1 INJECTION
     Route: 058
     Dates: start: 20110101
  6. ATORVASTITINE [Concomitant]
  7. KALIUMLOSARTAN [Concomitant]
  8. FOLIUM ACID [Concomitant]
  9. PANTOPRAZOLE [Concomitant]

REACTIONS (1)
  - PERIORBITAL OEDEMA [None]
